FAERS Safety Report 9841109 (Version 2)
Quarter: 2014Q4

REPORT INFORMATION
  Report Type: Spontaneous
  Country: US (occurrence: None)
  Receive Date: 20131212
  Receipt Date: 20141210
  Transmission Date: 20150529
  Serious: Yes (Hospitalization)
  Sender: FDA-Public Use
  Company Number: 20131003CINRY5105

PATIENT
  Age: 48 Year
  Sex: Female

DRUGS (3)
  1. CINRYZE [Suspect]
     Active Substance: HUMAN C1-ESTERASE INHIBITOR
     Indication: HEREDITARY ANGIOEDEMA
     Dosage: 1000 U, OTHER
     Route: 042
  2. CINRYZE [Suspect]
     Active Substance: HUMAN C1-ESTERASE INHIBITOR
     Indication: PROPHYLAXIS
     Dosage: 1000 U, OTHER
     Route: 042
  3. FIRAZYR [Concomitant]
     Active Substance: ICATIBANT ACETATE

REACTIONS (3)
  - Product use issue [None]
  - Hereditary angioedema [None]
  - Off label use [None]

NARRATIVE: CASE EVENT DATE: 20130926
